FAERS Safety Report 4367458-8 (Version None)
Quarter: 2004Q2

REPORT INFORMATION
  Report Type: 
  Country: None (occurrence: None)
  Receive Date: 20040524
  Receipt Date: 20040510
  Transmission Date: 20050107
  Serious: No
  Sender: FDA-Public Use
  Company Number: CART-10321

PATIENT
  Age: 40 Year
  Sex: Male

DRUGS (1)
  1. CARTICEL [Suspect]
     Indication: BONE DISORDER
     Dosage: 1 NA ONCE IS
     Route: 035
     Dates: start: 20001207, end: 20001207

REACTIONS (4)
  - ARTHRALGIA [None]
  - BONE DISORDER [None]
  - GRAFT COMPLICATION [None]
  - HYPERTROPHY [None]
